FAERS Safety Report 20697305 (Version 1)
Quarter: 2022Q2

REPORT INFORMATION
  Report Type: Spontaneous
  Country: RU (occurrence: RU)
  Receive Date: 20220411
  Receipt Date: 20220411
  Transmission Date: 20220721
  Serious: Yes (Other)
  Sender: FDA-Public Use
  Company Number: RU-UCBSA-2022019444

PATIENT
  Sex: Male

DRUGS (2)
  1. CETIRIZINE HYDROCHLORIDE [Suspect]
     Active Substance: CETIRIZINE HYDROCHLORIDE
     Indication: Dermatitis contact
     Dosage: 40 MILLIGRAM, ONCE DAILY (QD)
     Route: 065
  2. CETRIN [CETIRIZINE HYDROCHLORIDE] [Concomitant]
     Indication: Product used for unknown indication
     Dosage: 0.5 DOSAGE FORM, UNK
     Route: 065

REACTIONS (3)
  - Psychotic disorder [Recovered/Resolved]
  - Overdose [Unknown]
  - Product use in unapproved indication [Unknown]
